FAERS Safety Report 12265466 (Version 2)
Quarter: 2016Q2

REPORT INFORMATION
  Report Type: Spontaneous
  Country: IR (occurrence: IR)
  Receive Date: 20160413
  Receipt Date: 20160505
  Transmission Date: 20160815
  Serious: Yes (Hospitalization)
  Sender: FDA-Public Use
  Company Number: IR-JNJFOC-20160411320

PATIENT
  Age: 23 Year
  Sex: Male

DRUGS (1)
  1. TRAMADOL HYDROCHLORIDE. [Suspect]
     Active Substance: TRAMADOL HYDROCHLORIDE
     Indication: PREMATURE EJACULATION
     Route: 048
     Dates: start: 20150725, end: 20150725

REACTIONS (8)
  - Asthenia [Unknown]
  - Restlessness [Unknown]
  - Rhabdomyolysis [Recovered/Resolved]
  - Product use issue [Unknown]
  - Serotonin syndrome [Recovered/Resolved]
  - Tachycardia [Unknown]
  - Renal impairment [Recovered/Resolved]
  - Hepatic enzyme increased [Unknown]

NARRATIVE: CASE EVENT DATE: 20150725
